FAERS Safety Report 4733696-5 (Version None)
Quarter: 2005Q3

REPORT INFORMATION
  Report Type: 
  Country: None (occurrence: None)
  Receive Date: 20050729
  Receipt Date: 20050607
  Transmission Date: 20060218
  Serious: No
  Sender: FDA-Public Use
  Company Number: COT_0091_2005

PATIENT
  Age: 54 Year
  Sex: Male
  Weight: 100.6985 kg

DRUGS (1)
  1. VENTAVIS [Suspect]
     Indication: PULMONARY HYPERTENSION
     Dosage: 5 MCG Q2HR IH
     Route: 055
     Dates: start: 20050531

REACTIONS (2)
  - CONDITION AGGRAVATED [None]
  - FATIGUE [None]
